FAERS Safety Report 9914784 (Version 2)
Quarter: 2014Q1

REPORT INFORMATION
  Report Type: Report from Study
  Country: DE (occurrence: DE)
  Receive Date: 20140220
  Receipt Date: 20140321
  Transmission Date: 20141002
  Serious: Yes (Hospitalization)
  Sender: FDA-Public Use
  Company Number: DE-ABBVIE-14P-062-1201863-00

PATIENT
  Sex: Male

DRUGS (4)
  1. HUMIRA [Suspect]
     Indication: ANKYLOSING SPONDYLITIS
     Route: 058
     Dates: start: 20101214
  2. MARCUMAR [Concomitant]
     Indication: PRODUCT USED FOR UNKNOWN INDICATION
  3. DRUGS FOR HYPERCHOLESTEROLAEMIA [Concomitant]
     Indication: HYPERCHOLESTEROLAEMIA
  4. DRUGS FOR DIABETES [Concomitant]
     Indication: DIABETES MELLITUS

REACTIONS (1)
  - Post procedural complication [Recovered/Resolved]
